FAERS Safety Report 9858344 (Version 1)
Quarter: 2014Q1

REPORT INFORMATION
  Report Type: Spontaneous
  Country: JP (occurrence: None)
  Receive Date: 20140129
  Receipt Date: 20140129
  Transmission Date: 20141002
  Serious: Yes (Other)
  Sender: FDA-Public Use
  Company Number: SYM-2014-15474

PATIENT
  Age: 43 Year
  Sex: Male

DRUGS (12)
  1. FLUOROURACIL [Suspect]
     Indication: HEPATOCELLULAR CARCINOMA
  2. FLUOROURACIL [Suspect]
     Indication: OFF LABEL USE
  3. CISPLATIN [Suspect]
     Indication: HEPATOCELLULAR CARCINOMA
  4. CISPLATIN [Suspect]
     Indication: OFF LABEL USE
  5. ETOPOSIDE [Suspect]
     Indication: HEPATOCELLULAR CARCINOMA
  6. ETOPOSIDE [Suspect]
     Indication: OFF LABEL USE
  7. CARBOPLATIN [Suspect]
     Indication: HEPATOCELLULAR CARCINOMA
  8. CARBOPLATIN [Suspect]
     Indication: OFF LABEL USE
  9. EPIRUBICIN [Suspect]
     Indication: HEPATOCELLULAR CARCINOMA
  10. EPIRUBICIN [Suspect]
     Indication: OFF LABEL USE
  11. NSAID^S (NSAID^S) [Concomitant]
  12. OPIOIDS (OPIOIDS) [Concomitant]

REACTIONS (2)
  - Leukopenia [None]
  - Thrombocytopenia [None]
